FAERS Safety Report 6922241-1 (Version None)
Quarter: 2010Q3

REPORT INFORMATION
  Report Type: 
  Country: None (occurrence: None)
  Receive Date: 20100813
  Receipt Date: 20100803
  Transmission Date: 20110219
  Serious: Yes (Other)
  Sender: FDA-Public Use
  Company Number: JP-JNJFOC-20100801835

PATIENT
  Sex: Male

DRUGS (5)
  1. REMICADE [Suspect]
     Indication: RHEUMATOID ARTHRITIS
     Route: 042
  2. REMICADE [Suspect]
     Route: 042
  3. PREDNISOLONE [Concomitant]
     Indication: PREMEDICATION
     Dosage: DOSE= ^20 ML^
     Route: 042
  4. PREDNISOLONE [Concomitant]
     Route: 042
  5. METHOTREXATE [Concomitant]
     Indication: RHEUMATOID ARTHRITIS
     Route: 048

REACTIONS (5)
  - ANAPHYLACTOID REACTION [None]
  - BLOOD GLUCOSE DECREASED [None]
  - DYSGEUSIA [None]
  - INFUSION RELATED REACTION [None]
  - RASH [None]
